FAERS Safety Report 25205969 (Version 1)
Quarter: 2025Q2

REPORT INFORMATION
  Report Type: Report from Study
  Country: CA (occurrence: CA)
  Receive Date: 20250417
  Receipt Date: 20250417
  Transmission Date: 20250717
  Serious: Yes (Other)
  Sender: TEVA
  Company Number: CA-TEVA-VS-3322607

PATIENT
  Age: 78 Year
  Sex: Male

DRUGS (1)
  1. IMATINIB MESYLATE [Suspect]
     Active Substance: IMATINIB MESYLATE
     Indication: Chronic myeloid leukaemia
     Route: 048

REACTIONS (11)
  - Pericardial effusion [Unknown]
  - Blood creatinine increased [Unknown]
  - Gastrointestinal disorder [Unknown]
  - Dyspnoea [Unknown]
  - Haemoglobin decreased [Unknown]
  - Loss of therapeutic response [Unknown]
  - Pleural effusion [Unknown]
  - Cytogenetic analysis abnormal [Unknown]
  - Chest pain [Unknown]
  - Dyspnoea exertional [Unknown]
  - Drug intolerance [Unknown]
